FAERS Safety Report 24756687 (Version 1)
Quarter: 2024Q4

REPORT INFORMATION
  Report Type: Spontaneous
  Country: US (occurrence: US)
  Receive Date: 20241220
  Receipt Date: 20241220
  Transmission Date: 20250115
  Serious: No
  Sender: PADAGIS
  Company Number: US-PADAGIS-2024PAD01929

PATIENT

DRUGS (4)
  1. KETOCONAZOLE [Suspect]
     Active Substance: KETOCONAZOLE
     Indication: Tinea capitis
     Dosage: UNK
     Route: 061
  2. KETOCONAZOLE [Suspect]
     Active Substance: KETOCONAZOLE
     Indication: Kerion
  3. GRISEOFULVIN [Suspect]
     Active Substance: GRISEOFULVIN
     Indication: Tinea capitis
     Dosage: 20 MG/KG, QD
     Route: 048
  4. GRISEOFULVIN [Suspect]
     Active Substance: GRISEOFULVIN
     Indication: Kerion

REACTIONS (2)
  - Discomfort [Unknown]
  - Product use in unapproved indication [Unknown]
